FAERS Safety Report 13017022 (Version 1)
Quarter: 2016Q4

REPORT INFORMATION
  Report Type: Spontaneous
  Country: ES (occurrence: ES)
  Receive Date: 20161212
  Receipt Date: 20161212
  Transmission Date: 20170207
  Serious: Yes (Hospitalization)
  Sender: FDA-Public Use
  Company Number: ES-TEVA-717939ISR

PATIENT
  Age: 70 Year
  Sex: Male
  Weight: 100 kg

DRUGS (1)
  1. FENTANYL AUROVITAS SPAIN 25 MCG/H TRANSDERMAL PATCH EFG [Suspect]
     Active Substance: FENTANYL CITRATE
     Indication: BACK PAIN
     Dates: start: 20150701

REACTIONS (3)
  - Constipation [Recovered/Resolved]
  - Cardiac failure [Recovered/Resolved]
  - Chronic kidney disease [Recovered/Resolved]

NARRATIVE: CASE EVENT DATE: 20160326
